FAERS Safety Report 13946350 (Version 2)
Quarter: 2017Q4

REPORT INFORMATION
  Report Type: Spontaneous
  Country: US (occurrence: US)
  Receive Date: 20170907
  Receipt Date: 20171116
  Transmission Date: 20180320
  Serious: Yes (Life-Threatening)
  Sender: FDA-Public Use
  Company Number: US-ASTRAZENECA-2017SE89688

PATIENT
  Sex: Male

DRUGS (1)
  1. FARXIGA [Suspect]
     Active Substance: DAPAGLIFLOZIN PROPANEDIOL
     Route: 048

REACTIONS (2)
  - Oxygen saturation decreased [Unknown]
  - Anaphylactic shock [Unknown]
